FAERS Safety Report 23339627 (Version 1)
Quarter: 2023Q4

REPORT INFORMATION
  Report Type: Spontaneous
  Country: None (occurrence: US)
  Receive Date: 20231226
  Receipt Date: 20231226
  Transmission Date: 20240110
  Serious: No
  Sender: FDA-Public Use
  Company Number: US-Fresenius Kabi Compounding, LLC-2149725

PATIENT

DRUGS (1)
  1. OXYTOCIN [Suspect]
     Active Substance: OXYTOCIN

REACTIONS (1)
  - Adverse event [None]
